FAERS Safety Report 8994058 (Version 1)
Quarter: 2013Q1

REPORT INFORMATION
  Report Type: Spontaneous
  Country: US (occurrence: US)
  Receive Date: 20130102
  Receipt Date: 20130102
  Transmission Date: 20140127
  Serious: No
  Sender: FDA-Public Use
  Company Number: US-AMGEN-USASP2012078220

PATIENT
  Age: 60 Year
  Sex: Female

DRUGS (5)
  1. ENBREL [Suspect]
     Indication: RHEUMATOID ARTHRITIS
     Dosage: 50 MG, QWK
     Route: 058
     Dates: start: 200502
  2. LEVOTHYROXINE [Concomitant]
     Dosage: UNK
  3. HYDROCODONE/APAP [Concomitant]
     Dosage: UNK
  4. CELEBREX [Concomitant]
     Dosage: UNK
  5. QVAR [Concomitant]
     Dosage: 40 MG, UNK

REACTIONS (9)
  - Rash erythematous [Recovering/Resolving]
  - Rash pruritic [Not Recovered/Not Resolved]
  - Rash papular [Not Recovered/Not Resolved]
  - Rash [Recovering/Resolving]
  - Bronchitis [Recovered/Resolved]
  - Influenza [Recovered/Resolved]
  - Staphylococcal infection [Recovered/Resolved]
  - Upper respiratory tract infection [Recovered/Resolved]
  - Intertrigo candida [Recovering/Resolving]
